FAERS Safety Report 18687639 (Version 1)
Quarter: 2020Q4

REPORT INFORMATION
  Report Type: Spontaneous
  Country: US (occurrence: US)
  Receive Date: 20201229
  Receipt Date: 20201229
  Transmission Date: 20210114
  Serious: No
  Sender: FDA-Public Use
  Company Number: None

PATIENT
  Sex: Female

DRUGS (2)
  1. LETAIRIS [Suspect]
     Active Substance: AMBRISENTAN
     Indication: PULMONARY ARTERIAL HYPERTENSION
     Route: 048
  2. SILDENAFIL 20MG [Concomitant]
     Active Substance: SILDENAFIL

REACTIONS (3)
  - Therapy interrupted [None]
  - Bronchitis [None]
  - Pneumonia [None]
